FAERS Safety Report 23903356 (Version 1)
Quarter: 2024Q2

REPORT INFORMATION
  Report Type: Other
  Country: CA (occurrence: CA)
  Receive Date: 20240527
  Receipt Date: 20240527
  Transmission Date: 20240722
  Serious: Yes (Hospitalization, Other)
  Sender: FDA-Public Use
  Company Number: CA-APOTEX-2024AP006089

PATIENT
  Age: 57 Year
  Sex: Male

DRUGS (5)
  1. MONTELUKAST [Suspect]
     Active Substance: MONTELUKAST SODIUM
     Indication: Chronic spontaneous urticaria
     Dosage: 10 MILLIGRAM, QD
     Route: 048
  2. CYCLOSPORINE [Suspect]
     Active Substance: CYCLOSPORINE
     Indication: Chronic spontaneous urticaria
     Dosage: 50 MILLIGRAM, BID
     Route: 048
  3. CETIRIZINE HYDROCHLORIDE\PSEUDOEPHEDRINE HYDROCHLORIDE [Concomitant]
     Active Substance: CETIRIZINE HYDROCHLORIDE\PSEUDOEPHEDRINE HYDROCHLORIDE
     Indication: Chronic spontaneous urticaria
     Dosage: UNK, BID
     Route: 048
  4. DIPHENHYDRAMINE [Concomitant]
     Active Substance: DIPHENHYDRAMINE
     Indication: Chronic spontaneous urticaria
     Dosage: UNK
     Route: 048
  5. PREDNISONE [Concomitant]
     Active Substance: PREDNISONE
     Indication: Chronic spontaneous urticaria
     Dosage: UNK, QD
     Route: 048

REACTIONS (6)
  - Pain [Unknown]
  - Oral mucosal erythema [Unknown]
  - Urticaria [Unknown]
  - Insomnia [Unknown]
  - Oedema [Unknown]
  - Pruritus [Unknown]
